FAERS Safety Report 17520958 (Version 1)
Quarter: 2020Q1

REPORT INFORMATION
  Report Type: Spontaneous
  Country: NL (occurrence: NL)
  Receive Date: 20200309
  Receipt Date: 20200309
  Transmission Date: 20200409
  Serious: Yes (Hospitalization)
  Sender: FDA-Public Use
  Company Number: NL-TEVA-2020-NL-1196435

PATIENT
  Sex: Male
  Weight: 88 kg

DRUGS (9)
  1. SOTALOL. [Concomitant]
     Active Substance: SOTALOL
     Dosage: 80 MG (MILLIGRAM)
  2. BECLOMETASON/FORMOTEROL [Concomitant]
     Dosage: AEROSOL, 100/6 UG / DOSE (MICROGRAMS PER DOSE)
  3. IRBESARTAN. [Concomitant]
     Active Substance: IRBESARTAN
     Dosage: TABLET, 300 MG (MILLIGRAM)
  4. PANTOPRAZOL [Concomitant]
     Active Substance: PANTOPRAZOLE SODIUM
     Dosage: 40 MG (MILLIGRAMS)
  5. GABAPENTINE [Suspect]
     Active Substance: GABAPENTIN
     Dosage: 400 MG (MILLIGRAM), 1 TIME PER DAY, BUILD UP. ONCE A DAY, THEN TWICE A DAY. UNTIL HE CAN TAKE 3 TIME
  6. GABAPENTINE [Suspect]
     Active Substance: GABAPENTIN
     Dosage: 400 MG (MILLIGRAMS), ONCE A DAY, BUILD UP. ONCE A DAY, THEN TWICE A DAY. UNTIL HE CAN TAKE 3 TIMES A
  7. ROSUVASTATINE [Concomitant]
     Active Substance: ROSUVASTATIN
     Dosage: FILM-COATED TABLET, 5 MG (MILLIGRAMS)
  8. GABAPENTINE [Suspect]
     Active Substance: GABAPENTIN
     Indication: POLYNEUROPATHY
     Dosage: 400 MG (MILLIGRAMS), ONCE A DAY, BUILD UP. ONCE A DAY, THEN TWICE A DAY. UNTIL HE CAN TAKE 3 TIMES A
     Dates: start: 20181018, end: 20181113
  9. POVIDON [Concomitant]
     Dosage: EYE DROPS, 50 MG / ML (MILLIGRAMS PER MILLILITER)

REACTIONS (3)
  - Hallucination [Recovered/Resolved]
  - Dyspnoea [Recovered/Resolved]
  - Pharyngeal swelling [Recovered/Resolved]
